FAERS Safety Report 23196050 (Version 1)
Quarter: 2023Q4

REPORT INFORMATION
  Report Type: Report from Study
  Country: JP (occurrence: JP)
  Receive Date: 20231117
  Receipt Date: 20231117
  Transmission Date: 20240110
  Serious: Yes (Other)
  Sender: FDA-Public Use
  Company Number: JP-Merck Healthcare KGaA-2023486803

PATIENT
  Sex: Female

DRUGS (2)
  1. GONAL-F RFF [Suspect]
     Active Substance: FOLLITROPIN
     Indication: Product used for unknown indication
     Dosage: 300 UNSPECIFIED UNITS
     Route: 058
  2. GONAL-F RFF [Suspect]
     Active Substance: FOLLITROPIN
     Dosage: 450 UNSPECIFIED UNITS
     Route: 058

REACTIONS (1)
  - Internal haemorrhage [Unknown]
